FAERS Safety Report 7779415-X (Version None)
Quarter: 2011Q3

REPORT INFORMATION
  Report Type: 
  Country: None (occurrence: None)
  Receive Date: 20110927
  Receipt Date: 20110921
  Transmission Date: 20111222
  Serious: No
  Sender: FDA-Public Use
  Company Number: US-BIOGENIDEC-2010BI044737

PATIENT
  Age: 43 Year
  Sex: Female

DRUGS (6)
  1. TYSABRI [Suspect]
     Indication: MULTIPLE SCLEROSIS
     Route: 042
     Dates: start: 20060901, end: 20080101
  2. TYSABRI [Suspect]
     Route: 042
     Dates: start: 20050216, end: 20050216
  3. TYSABRI [Suspect]
     Route: 042
     Dates: start: 20100101, end: 20100801
  4. AVONEX [Concomitant]
     Indication: MULTIPLE SCLEROSIS
     Route: 030
     Dates: start: 19970101, end: 20060731
  5. TYSABRI [Suspect]
     Route: 042
     Dates: start: 20080101, end: 20100101
  6. TYSABRI [Suspect]
     Route: 042
     Dates: start: 20100801

REACTIONS (7)
  - FALL [None]
  - LIP INJURY [None]
  - TOOTH FRACTURE [None]
  - LYMPHADENOPATHY [None]
  - FOOD ALLERGY [None]
  - CONTUSION [None]
  - LACERATION [None]
